FAERS Safety Report 5373983-3 (Version None)
Quarter: 2007Q2

REPORT INFORMATION
  Report Type: 
  Country: None (occurrence: None)
  Receive Date: 20070627
  Receipt Date: 20070612
  Transmission Date: 20071010
  Serious: Yes (Hospitalization)
  Sender: FDA-Public Use
  Company Number: APP200700191

PATIENT
  Age: 15 Year
  Sex: 0
  Weight: 51.7 kg

DRUGS (3)
  1. VANCOMYCIN HYDROCHLORIDE [Suspect]
     Indication: OSTEOMYELITIS
     Dosage: 2304 MG (768 MG, 1 IN 8 HR), INTRAVENOUS
     Route: 042
     Dates: start: 20070526, end: 20070608
  2. VANCOMYCIN HYDROCHLORIDE [Suspect]
  3. ZYVOX [Suspect]
     Indication: OSTEOMYELITIS
     Dates: start: 20070608, end: 20070609

REACTIONS (4)
  - FACE OEDEMA [None]
  - HYPOTENSION [None]
  - LETHARGY [None]
  - PYREXIA [None]
